FAERS Safety Report 11010086 (Version 1)
Quarter: 2015Q2

REPORT INFORMATION
  Report Type: Spontaneous
  Country: US (occurrence: US)
  Receive Date: 20150410
  Receipt Date: 20150410
  Transmission Date: 20150821
  Serious: Yes (Death, Other)
  Sender: FDA-Public Use
  Company Number: US-MALLINCKRODT-T201501950

PATIENT
  Age: 15 Year
  Sex: Female

DRUGS (6)
  1. HYDROMORPHONE [Suspect]
     Active Substance: HYDROMORPHONE
     Indication: PAIN
     Dosage: PCA PUMP
     Route: 042
  2. HYDROMORPHONE [Suspect]
     Active Substance: HYDROMORPHONE
     Dosage: UNK
     Route: 037
  3. BUPIVACAINE [Suspect]
     Active Substance: BUPIVACAINE
     Indication: PAIN
     Route: 037
  4. METHADOSE [Suspect]
     Active Substance: METHADONE HYDROCHLORIDE
     Indication: PAIN
     Route: 065
  5. HYDROMORPHONE [Suspect]
     Active Substance: HYDROMORPHONE
     Indication: PAIN
     Route: 048
  6. FENTANYL CITRATE. [Suspect]
     Active Substance: FENTANYL CITRATE
     Indication: PAIN
     Route: 048

REACTIONS (7)
  - Urinary retention [Recovering/Resolving]
  - Somnolence [Unknown]
  - Vomiting [Unknown]
  - Drug effect decreased [Recovering/Resolving]
  - Hallucination [Recovering/Resolving]
  - Nausea [Unknown]
  - Renal failure [Fatal]
